FAERS Safety Report 7551779-1 (Version None)
Quarter: 2011Q2

REPORT INFORMATION
  Report Type: 
  Country: None (occurrence: None)
  Receive Date: 20110616
  Receipt Date: 20110607
  Transmission Date: 20111010
  Serious: Yes (Other)
  Sender: FDA-Public Use
  Company Number: B0724001A

PATIENT
  Sex: Female

DRUGS (7)
  1. PREDNISOLONE [Concomitant]
     Dosage: 7.5MG PER DAY
     Route: 048
  2. MAGMITT [Concomitant]
     Dosage: 660MG PER DAY
     Route: 048
  3. VALTREX [Suspect]
     Indication: HERPES ZOSTER
     Dosage: 3000MG PER DAY
     Route: 048
     Dates: start: 20110528, end: 20110531
  4. FAMOTIDINE [Concomitant]
     Dosage: 20MG PER DAY
     Route: 048
  5. EPADEL [Concomitant]
     Dosage: 1800MG PER DAY
     Route: 048
  6. METHYCOBAL [Concomitant]
     Dosage: 1500MCG PER DAY
     Route: 048
  7. ZYPREXA [Concomitant]
     Dosage: 2.5MG PER DAY
     Route: 048

REACTIONS (3)
  - RENAL FAILURE [None]
  - URINE OUTPUT DECREASED [None]
  - BLOOD CREATININE INCREASED [None]
